FAERS Safety Report 16823136 (Version 2)
Quarter: 2019Q4

REPORT INFORMATION
  Report Type: Spontaneous
  Country: US (occurrence: US)
  Receive Date: 20190918
  Receipt Date: 20191112
  Transmission Date: 20200122
  Serious: Yes (Hospitalization, Other)
  Sender: FDA-Public Use
  Company Number: US-009507513-1909USA004563

PATIENT
  Age: 22 Year
  Sex: Female
  Weight: 62.59 kg

DRUGS (1)
  1. NEXPLANON [Suspect]
     Active Substance: ETONOGESTREL
     Indication: CONTRACEPTION
     Dosage: 1 DOSAGE FORM; LEFT ARM, FREQUENCY-ONCE
     Route: 059
     Dates: start: 201703, end: 20190909

REACTIONS (9)
  - Seizure [Unknown]
  - Presyncope [Unknown]
  - Complication associated with device [Recovered/Resolved]
  - Menstruation irregular [Unknown]
  - Seizure [Recovered/Resolved]
  - Complication of device removal [Recovered/Resolved]
  - Syncope [Recovered/Resolved]
  - Device deployment issue [Recovered/Resolved]
  - Post procedural swelling [Unknown]

NARRATIVE: CASE EVENT DATE: 201703
